FAERS Safety Report 9490152 (Version 2)
Quarter: 2013Q3

REPORT INFORMATION
  Report Type: Report from Study
  Country: US (occurrence: US)
  Receive Date: 20130830
  Receipt Date: 20130925
  Transmission Date: 20140515
  Serious: Yes (Other)
  Sender: FDA-Public Use
  Company Number: US-ROCHE-1267986

PATIENT
  Sex: Female

DRUGS (1)
  1. BONIVA [Suspect]
     Indication: SENILE OSTEOPOROSIS
     Route: 048

REACTIONS (2)
  - Fall [Unknown]
  - Tibia fracture [Unknown]
